FAERS Safety Report 13767739 (Version 4)
Quarter: 2017Q4

REPORT INFORMATION
  Report Type: Spontaneous
  Country: US (occurrence: US)
  Receive Date: 20170719
  Receipt Date: 20171027
  Transmission Date: 20180320
  Serious: No
  Sender: FDA-Public Use
  Company Number: US-BRISTOL-MYERS SQUIBB COMPANY-BMS-2017-064140

PATIENT
  Sex: Male

DRUGS (2)
  1. ABILIFY [Suspect]
     Active Substance: ARIPIPRAZOLE
     Indication: AFFECTIVE DISORDER
     Dosage: 2 MG, UNK
     Route: 065
     Dates: start: 20130618, end: 201503
  2. ABILIFY [Suspect]
     Active Substance: ARIPIPRAZOLE
     Indication: ANXIETY
     Route: 065

REACTIONS (3)
  - Gambling [Recovered/Resolved]
  - Hypersexuality [Recovered/Resolved]
  - Product use in unapproved indication [Unknown]
